FAERS Safety Report 7964883-0 (Version None)
Quarter: 2011Q4

REPORT INFORMATION
  Report Type: 
  Country: None (occurrence: None)
  Receive Date: 20111208
  Receipt Date: 20111129
  Transmission Date: 20120403
  Serious: Yes (Other)
  Sender: FDA-Public Use
  Company Number: PHHY2011CA105664

PATIENT
  Age: 70 Year
  Sex: Female

DRUGS (3)
  1. HYZAAR [Concomitant]
     Dosage: UNK
     Route: 048
     Dates: start: 20100531
  2. RASILEZ [Suspect]
     Dosage: UNK
     Route: 048
     Dates: start: 20110811, end: 20111118
  3. LANSOPRAZOLE [Concomitant]
     Dosage: UNK
     Route: 048
     Dates: start: 20110908

REACTIONS (3)
  - DIZZINESS [None]
  - PARAESTHESIA ORAL [None]
  - RENAL DISORDER [None]
